FAERS Safety Report 19894835 (Version 1)
Quarter: 2021Q3

REPORT INFORMATION
  Report Type: Spontaneous
  Country: US (occurrence: US)
  Receive Date: 20210929
  Receipt Date: 20210929
  Transmission Date: 20211014
  Serious: No
  Sender: FDA-Public Use
  Company Number: US-CELLTRION INC.-2021US008727

PATIENT

DRUGS (2)
  1. INFLECTRA [Suspect]
     Active Substance: INFLIXIMAB-DYYB
     Indication: HIDRADENITIS
     Dosage: 550MG, INTRAVENOUSLY, EVERY 56 DAYS
     Route: 042
  2. INFLECTRA [Suspect]
     Active Substance: INFLIXIMAB-DYYB
     Dosage: 550 MG BY INFUSION EVERY 42 DAYS
     Route: 042

REACTIONS (5)
  - Product temperature excursion issue [Unknown]
  - Treatment delayed [Unknown]
  - Intercepted product storage error [Unknown]
  - Off label use [Unknown]
  - Product packaging issue [Unknown]
